FAERS Safety Report 7060566-2 (Version None)
Quarter: 2010Q4

REPORT INFORMATION
  Report Type: 
  Country: None (occurrence: None)
  Receive Date: 20101025
  Receipt Date: 20100701
  Transmission Date: 20110411
  Serious: Yes (Life-Threatening, Hospitalization)
  Sender: FDA-Public Use
  Company Number: BR-SANOFI-AVENTIS-2010SA064324

PATIENT
  Age: 78 Year
  Sex: Male
  Weight: 60 kg

DRUGS (5)
  1. CLEXANE [Suspect]
     Route: 058
  2. FUROSEMIDE [Concomitant]
     Route: 042
  3. ASPIRIN [Concomitant]
     Indication: CORONARY ARTERY DISEASE
     Route: 048
  4. CLOPIDOGREL [Concomitant]
     Indication: CORONARY ARTERY DISEASE
     Route: 048
  5. NITROGLYCERIN [Concomitant]
     Indication: CORONARY ARTERY DISEASE
     Route: 042

REACTIONS (2)
  - COMPARTMENT SYNDROME [None]
  - OFF LABEL USE [None]
